FAERS Safety Report 15373854 (Version 2)
Quarter: 2018Q4

REPORT INFORMATION
  Report Type: Report from Study
  Country: None (occurrence: CA)
  Receive Date: 20180912
  Receipt Date: 20181001
  Transmission Date: 20190204
  Serious: Yes (Death, Hospitalization, Other)
  Sender: FDA-Public Use
  Company Number: CA-ABBVIE-18K-028-2482496-00

PATIENT
  Age: 60 Year
  Sex: Male
  Weight: 63 kg

DRUGS (2)
  1. VENCLEXTA [Suspect]
     Active Substance: VENETOCLAX
     Indication: DIFFUSE LARGE B-CELL LYMPHOMA
     Route: 048
     Dates: start: 201809, end: 201809
  2. BENDAMUSTINE W/RITUXIMAB [Concomitant]
     Indication: PRODUCT USED FOR UNKNOWN INDICATION

REACTIONS (4)
  - Gastrointestinal obstruction [Unknown]
  - Hospitalisation [Unknown]
  - Lymphoma [Fatal]
  - Dysphagia [Unknown]

NARRATIVE: CASE EVENT DATE: 20180908
